FAERS Safety Report 7996052-2 (Version None)
Quarter: 2011Q4

REPORT INFORMATION
  Report Type: 
  Country: None (occurrence: None)
  Receive Date: 20111220
  Receipt Date: 20111209
  Transmission Date: 20120403
  Serious: Yes (Other)
  Sender: FDA-Public Use
  Company Number: PHHY2011JP17924

PATIENT
  Sex: Male

DRUGS (5)
  1. AFINITOR [Suspect]
     Indication: RENAL CELL CARCINOMA
     Dosage: 10 MG, DAILY
     Route: 048
     Dates: start: 20110126, end: 20110603
  2. SORAFENIB TOSILATE [Concomitant]
     Indication: RENAL CELL CARCINOMA
     Dosage: 400 MG, UNK
     Route: 048
     Dates: start: 20110112, end: 20110118
  3. AFINITOR [Suspect]
     Dosage: 5 MG, UNK
     Route: 048
     Dates: start: 20110615
  4. SUNITINIB MALATE [Concomitant]
     Indication: RENAL CELL CARCINOMA
     Dosage: 50 MG, UNK
     Route: 048
     Dates: start: 20101015, end: 20101229
  5. NORVASC [Concomitant]
     Indication: HYPERTENSION
     Dosage: 5 MG, UNK
     Route: 048
     Dates: start: 20100927

REACTIONS (3)
  - BLOOD GLUCOSE INCREASED [None]
  - DIABETES MELLITUS [None]
  - C-REACTIVE PROTEIN INCREASED [None]
